FAERS Safety Report 5858214-X (Version None)
Quarter: 2008Q3

REPORT INFORMATION
  Report Type: 
  Country: None (occurrence: None)
  Receive Date: 20080826
  Receipt Date: 20080821
  Transmission Date: 20090109
  Serious: Yes (Hospitalization)
  Sender: FDA-Public Use
  Company Number: A0731999A

PATIENT
  Age: 74 Year
  Sex: Female
  Weight: 59.1 kg

DRUGS (10)
  1. AVANDIA [Suspect]
     Dosage: 4MG PER DAY
     Route: 048
     Dates: start: 20041115, end: 20071201
  2. AVANDARYL [Suspect]
     Route: 048
     Dates: start: 20041115, end: 20071201
  3. GLUCOPHAGE [Concomitant]
     Dates: start: 20010416
  4. METFORMIN HCL [Concomitant]
     Dates: start: 20060802
  5. COZAAR [Concomitant]
  6. AVAPRO [Concomitant]
  7. ASPIRIN [Concomitant]
  8. ATACAND [Concomitant]
  9. VYTORIN [Concomitant]
  10. ZOCOR [Concomitant]

REACTIONS (7)
  - CARDIAC DISORDER [None]
  - CARDIAC FAILURE [None]
  - CARDIAC FAILURE CONGESTIVE [None]
  - CARDIAC VALVE DISEASE [None]
  - MYOCARDIAL INFARCTION [None]
  - OEDEMA [None]
  - PULMONARY ARTERIAL HYPERTENSION [None]
